FAERS Safety Report 9443609 (Version 1)
Quarter: 2013Q3

REPORT INFORMATION
  Report Type: Spontaneous
  Country: DE (occurrence: None)
  Receive Date: 20130802
  Receipt Date: 20130802
  Transmission Date: 20140515
  Serious: Yes (Hospitalization, Other)
  Sender: FDA-Public Use
  Company Number: VAL_02668_2013

PATIENT
  Age: 1 Day
  Sex: Female
  Weight: 1.8 kg

DRUGS (4)
  1. METOPROLOL [Suspect]
     Indication: PRODUCT USED FOR UNKNOWN INDICATION
     Dosage: (MATERNAL 200 [MG/D]/ 100MGD IM 1. TRIM. 200MG/D IM 2.+3. TRIM. [REGIMEN #1] TRANSPLACENTAL)
  2. NEPRESOL [Suspect]
     Indication: PRODUCT USED FOR UNKNOWN INDICATION
     Dosage: (MATERNAL 50 [MG/D] 50 MG FROM GESTATIONAL WEEK 36 TRANSPLACENTAL)
  3. PRESINOL [Suspect]
     Indication: PRODUCT USED FOR UNKNOWN INDICATION
     Dosage: (250 MG DAILY IN 1ST TRIMENON TRANSPLACENTAL)
  4. FOLSAEURE [Suspect]
     Indication: PROPHYLAXIS OF NEURAL TUBE DEFECT

REACTIONS (5)
  - Caesarean section [None]
  - Premature baby [None]
  - Maternal drugs affecting foetus [None]
  - Small for dates baby [None]
  - Vomiting neonatal [None]
